FAERS Safety Report 7219460-6 (Version None)
Quarter: 2011Q1

REPORT INFORMATION
  Report Type: 
  Country: None (occurrence: None)
  Receive Date: 20110111
  Receipt Date: 20101227
  Transmission Date: 20110831
  Serious: Yes (Other)
  Sender: FDA-Public Use
  Company Number: JP-BAYER-2010-006106

PATIENT
  Age: 75 Year
  Sex: Male

DRUGS (1)
  1. NEXAVAR [Suspect]
     Indication: HEPATIC NEOPLASM MALIGNANT
     Dosage: UNK
     Route: 048
     Dates: start: 20101201

REACTIONS (4)
  - LACUNAR INFARCTION [None]
  - DIARRHOEA [None]
  - DECREASED APPETITE [None]
  - MALAISE [None]
